FAERS Safety Report 9486906 (Version 1)
Quarter: 2013Q3

REPORT INFORMATION
  Report Type: Spontaneous
  Country: RU (occurrence: RU)
  Receive Date: 20130829
  Receipt Date: 20130829
  Transmission Date: 20140515
  Serious: Yes (Other)
  Sender: FDA-Public Use
  Company Number: RU-GLAXOSMITHKLINE-B0918685A

PATIENT
  Age: 33 Year
  Sex: Female

DRUGS (8)
  1. BENLYSTA [Suspect]
     Indication: SYSTEMIC LUPUS ERYTHEMATOSUS
     Dosage: 800MG PER DAY
     Route: 065
     Dates: start: 20130429, end: 201308
  2. METYPRED [Concomitant]
     Indication: SYSTEMIC LUPUS ERYTHEMATOSUS
     Dates: start: 20130429, end: 201308
  3. PREDNISOLONE [Concomitant]
     Dates: start: 200905
  4. DEXAMETHASONE [Concomitant]
     Dates: start: 201008
  5. DIPROSPAN [Concomitant]
     Route: 030
  6. CELLCEPT [Concomitant]
     Dates: start: 2009
  7. PLAQUENIL [Concomitant]
     Dosage: 200MG PER DAY
  8. RITUXIMAB [Concomitant]
     Route: 042
     Dates: start: 2011

REACTIONS (7)
  - Systemic lupus erythematosus [Unknown]
  - Rash [Unknown]
  - Alopecia [Unknown]
  - Cheilitis [Unknown]
  - Pruritus [Unknown]
  - Burning sensation [Unknown]
  - Skin injury [Unknown]
